FAERS Safety Report 11288671 (Version 3)
Quarter: 2016Q2

REPORT INFORMATION
  Report Type: Report from Study
  Country: US (occurrence: US)
  Receive Date: 20150721
  Receipt Date: 20160614
  Transmission Date: 20160815
  Serious: Yes (Hospitalization, Other)
  Sender: FDA-Public Use
  Company Number: US-SA-2014SA016277

PATIENT
  Age: 55 Year
  Sex: Female

DRUGS (6)
  1. AUBAGIO [Suspect]
     Active Substance: TERIFLUNOMIDE
     Indication: MULTIPLE SCLEROSIS
     Route: 048
     Dates: start: 201311
  2. TETRAHYDROCANNABINOL [Concomitant]
     Active Substance: DRONABINOL
  3. AUBAGIO [Suspect]
     Active Substance: TERIFLUNOMIDE
     Indication: MULTIPLE SCLEROSIS
     Route: 048
     Dates: start: 201311
  4. KLONOPIN [Concomitant]
     Active Substance: CLONAZEPAM
  5. MARIJUANA [Concomitant]
     Active Substance: CANNABIS SATIVA SUBSP. INDICA TOP
  6. ABILIFY [Concomitant]
     Active Substance: ARIPIPRAZOLE

REACTIONS (32)
  - Urinary retention [Unknown]
  - Bronchitis [Unknown]
  - Oropharyngeal pain [Unknown]
  - Restless legs syndrome [Unknown]
  - Pain in extremity [Recovered/Resolved]
  - Tooth fracture [Unknown]
  - Cough [Unknown]
  - Dehydration [Unknown]
  - Skin discolouration [Unknown]
  - Crying [Recovered/Resolved]
  - Weight decreased [Unknown]
  - Face injury [Unknown]
  - Myoclonus [Recovered/Resolved]
  - Bladder disorder [Unknown]
  - Rhinorrhoea [Unknown]
  - Failure to thrive [Unknown]
  - Cystitis [Recovering/Resolving]
  - Incontinence [Unknown]
  - Affect lability [Recovered/Resolved]
  - Contusion [Unknown]
  - Areflexia [Unknown]
  - Cataract [Not Recovered/Not Resolved]
  - Drug ineffective [Unknown]
  - Haemorrhage urinary tract [Recovering/Resolving]
  - Drug screen negative [Unknown]
  - Urinary tract infection [Unknown]
  - Fall [Unknown]
  - Balance disorder [Unknown]
  - Migraine [Unknown]
  - Multiple sclerosis relapse [Recovered/Resolved]
  - Gait disturbance [Unknown]
  - Asthenia [Unknown]

NARRATIVE: CASE EVENT DATE: 201311
